FAERS Safety Report 6739013-3 (Version None)
Quarter: 2010Q2

REPORT INFORMATION
  Report Type: 
  Country: None (occurrence: None)
  Receive Date: 20100524
  Receipt Date: 20100524
  Transmission Date: 20101027
  Serious: No
  Sender: FDA-Public Use
  Company Number: None

PATIENT
  Age: 64 Year
  Sex: Male
  Weight: 65.7716 kg

DRUGS (2)
  1. EVOXAC [Suspect]
     Indication: DRY MOUTH
     Dosage: 30MG 3 TIMES DAILY PO
     Route: 048
     Dates: start: 20041001
  2. EVOXAC [Suspect]
     Indication: RADIOTHERAPY
     Dosage: 30MG 3 TIMES DAILY PO
     Route: 048
     Dates: start: 20041001

REACTIONS (2)
  - HYPERHIDROSIS [None]
  - RHINORRHOEA [None]
